FAERS Safety Report 17957215 (Version 2)
Quarter: 2020Q3

REPORT INFORMATION
  Report Type: Spontaneous
  Country: US (occurrence: US)
  Receive Date: 20200629
  Receipt Date: 20200727
  Transmission Date: 20201103
  Serious: Yes (Death)
  Sender: FDA-Public Use
  Company Number: NVSC2020US178851

PATIENT
  Sex: Female

DRUGS (1)
  1. ZORTRESS [Suspect]
     Active Substance: EVEROLIMUS
     Indication: PRODUCT USED FOR UNKNOWN INDICATION
     Dosage: 2 MG, BID
     Route: 065

REACTIONS (3)
  - Peripheral swelling [Recovering/Resolving]
  - Oedema peripheral [Recovering/Resolving]
  - Myocardial infarction [Fatal]

NARRATIVE: CASE EVENT DATE: 202004
